FAERS Safety Report 22766113 (Version 4)
Quarter: 2025Q3

REPORT INFORMATION
  Report Type: Report from Study
  Country: US (occurrence: US)
  Receive Date: 20230731
  Receipt Date: 20250722
  Transmission Date: 20251021
  Serious: Yes (Other)
  Sender: ABBVIE
  Company Number: US-ABBVIE-5279365

PATIENT
  Age: 84 Year
  Sex: Female
  Weight: 56.699 kg

DRUGS (24)
  1. RINVOQ [Suspect]
     Active Substance: UPADACITINIB
     Indication: Rheumatoid arthritis
     Dosage: 15 MILLIGRAM
     Route: 048
     Dates: start: 20220401
  2. VALSARTAN [Concomitant]
     Active Substance: VALSARTAN
     Indication: Hypertension
  3. MYRBETRIQ [Concomitant]
     Active Substance: MIRABEGRON
     Indication: Bladder disorder
  4. FOLIC ACID [Concomitant]
     Active Substance: FOLIC ACID
     Indication: Rheumatoid arthritis
  5. IMDUR [Concomitant]
     Active Substance: ISOSORBIDE MONONITRATE
     Indication: Cardiac disorder
  6. MINERALS\VITAMINS [Concomitant]
     Active Substance: MINERALS\VITAMINS
     Indication: Supplementation therapy
  7. HYDROXYCHLOROQUINE [Concomitant]
     Active Substance: HYDROXYCHLOROQUINE
     Indication: Rheumatoid arthritis
  8. HYDROCODONE [Concomitant]
     Active Substance: HYDROCODONE
     Indication: Pain management
  9. BACTRIM [Concomitant]
     Active Substance: SULFAMETHOXAZOLE\TRIMETHOPRIM
     Indication: Kidney infection
  10. LINZESS [Concomitant]
     Active Substance: LINACLOTIDE
     Indication: Constipation
  11. LUNESTA [Concomitant]
     Active Substance: ESZOPICLONE
     Indication: Sleep disorder
     Dates: start: 20190716
  12. BENZONATATE [Concomitant]
     Active Substance: BENZONATATE
     Indication: Cough
  13. VITAMIN D NOS [Concomitant]
     Active Substance: CHOLECALCIFEROL\ERGOCALCIFEROL
     Indication: Supplementation therapy
  14. NEXIUM [Concomitant]
     Active Substance: ESOMEPRAZOLE MAGNESIUM
     Indication: Product used for unknown indication
  15. PLAVIX [Concomitant]
     Active Substance: CLOPIDOGREL BISULFATE
     Indication: Product used for unknown indication
  16. FIORINAL [Concomitant]
     Active Substance: ASPIRIN\BUTALBITAL\CAFFEINE
     Indication: Headache
  17. CALCIUM [Concomitant]
     Active Substance: CALCIUM
     Indication: Supplementation therapy
  18. DALIRESP [Concomitant]
     Active Substance: ROFLUMILAST
     Indication: Asthma
  19. SULFASALAZINE [Concomitant]
     Active Substance: SULFASALAZINE
     Indication: Rheumatoid arthritis
  20. ATENOLOL [Concomitant]
     Active Substance: ATENOLOL
     Indication: Hypertension
  21. NITROGLYCERIN [Concomitant]
     Active Substance: NITROGLYCERIN
     Indication: Cardiac disorder
  22. ROPINIROLE [Concomitant]
     Active Substance: ROPINIROLE
     Indication: Musculoskeletal disorder
     Dosage: ROPINIROLE-ER
  23. B12 shot [Concomitant]
     Indication: Supplementation therapy
  24. TRELEGY ELLIPTA [Concomitant]
     Active Substance: FLUTICASONE FUROATE\UMECLIDINIUM BROMIDE\VILANTEROL TRIFENATATE
     Indication: Asthma

REACTIONS (4)
  - Thoracic vertebral fracture [Recovered/Resolved]
  - Fall [Unknown]
  - Osteoporosis [Unknown]
  - Back pain [Not Recovered/Not Resolved]

NARRATIVE: CASE EVENT DATE: 20230101
